FAERS Safety Report 17542050 (Version 1)
Quarter: 2020Q1

REPORT INFORMATION
  Report Type: Spontaneous
  Country: AT (occurrence: AT)
  Receive Date: 20200313
  Receipt Date: 20200313
  Transmission Date: 20200409
  Serious: Yes (Other)
  Sender: FDA-Public Use
  Company Number: AT-ANIPHARMA-2020-AT-000005

PATIENT
  Age: 68 Year
  Sex: Female

DRUGS (2)
  1. ANASTROZOLE. [Suspect]
     Active Substance: ANASTROZOLE
     Indication: PRODUCT USED FOR UNKNOWN INDICATION
     Dosage: 1 MG DAILY/UNK
     Route: 048
     Dates: start: 20190506
  2. RIBOCICLIB. [Suspect]
     Active Substance: RIBOCICLIB
     Dosage: UNKNOWN
     Route: 065
     Dates: start: 20190506

REACTIONS (3)
  - Thrombosis [Unknown]
  - Osteosclerosis [Unknown]
  - Metastases to lung [Unknown]

NARRATIVE: CASE EVENT DATE: 20190326
